FAERS Safety Report 18705097 (Version 1)
Quarter: 2021Q1

REPORT INFORMATION
  Report Type: Spontaneous
  Country: US (occurrence: US)
  Receive Date: 20210106
  Receipt Date: 20210106
  Transmission Date: 20210419
  Serious: Yes (Other)
  Sender: FDA-Public Use
  Company Number: US-TEVA-2020-US-1865105

PATIENT
  Age: 34 Year
  Sex: Male
  Weight: 99.79 kg

DRUGS (11)
  1. OXYCODONE HCL 5 MG TABLET [Concomitant]
  2. METHOCARBAMOL 500 MG TABLET [Concomitant]
  3. TYLENOL 325 MG TABLET [Concomitant]
  4. DOCUSATE SODIUM 100 MG CAPSULE [Concomitant]
  5. ALEVE 220 MG CAPSULE [Concomitant]
  6. DEPAKOTE 125 MG TABLET DR [Concomitant]
  7. AUSTEDO [Suspect]
     Active Substance: DEUTETRABENAZINE
     Indication: TARDIVE DYSKINESIA
     Dosage: 12 MILLIGRAM DAILY;
     Route: 048
     Dates: start: 2019
  8. ZOFRAN 4 MG TABLET [Concomitant]
     Route: 065
  9. ZANAFLEX 2 MG CAPSULE [Concomitant]
  10. LATUDA [Concomitant]
     Active Substance: LURASIDONE HYDROCHLORIDE
  11. LYRICA 100 MG CAPSULE [Concomitant]

REACTIONS (3)
  - Cerebrospinal fluid leakage [Recovering/Resolving]
  - Product dose omission issue [Unknown]
  - Headache [Recovering/Resolving]

NARRATIVE: CASE EVENT DATE: 20201219
